FAERS Safety Report 9981613 (Version 1)
Quarter: 2014Q1

REPORT INFORMATION
  Report Type: Spontaneous
  Country: US (occurrence: None)
  Receive Date: 20140306
  Receipt Date: 20140306
  Transmission Date: 20141002
  Serious: Yes (Other)
  Sender: FDA-Public Use
  Company Number: None

PATIENT
  Age: 39 Year
  Sex: Female
  Weight: 54.43 kg

DRUGS (8)
  1. LEVOFLOXACIN 500MG ZYDUS [Suspect]
     Indication: PROPHYLAXIS
     Route: 048
     Dates: start: 20140207, end: 20140216
  2. LEVOFLOXACIN 500MG ZYDUS [Suspect]
     Indication: SURGERY
     Route: 048
     Dates: start: 20140207, end: 20140216
  3. NAPROXEN [Concomitant]
  4. FLUCONAZOLE [Concomitant]
  5. OXYCODONE/APAP [Concomitant]
  6. MIRALAX [Concomitant]
  7. PROMETHAZINE [Concomitant]
  8. B12 [Concomitant]

REACTIONS (5)
  - Arthralgia [None]
  - Tendonitis [None]
  - Paraesthesia [None]
  - Hypoaesthesia [None]
  - Neuropathy peripheral [None]
